FAERS Safety Report 21161487 (Version 3)
Quarter: 2024Q4

REPORT INFORMATION
  Report Type: Spontaneous
  Country: US (occurrence: US)
  Receive Date: 20220802
  Receipt Date: 20241026
  Transmission Date: 20250115
  Serious: No
  Sender: GLAXOSMITHKLINE
  Company Number: US-GSK-US2022AMR112697

PATIENT
  Sex: Female

DRUGS (3)
  1. BENLYSTA [Suspect]
     Active Substance: BELIMUMAB
     Indication: Systemic lupus erythematosus
     Dosage: 560 MG, Q4W
     Dates: start: 202108
  2. BENLYSTA [Suspect]
     Active Substance: BELIMUMAB
     Indication: Systemic lupus erythematosus
     Dosage: 640 MG, Q4W
     Route: 042
  3. BENLYSTA [Suspect]
     Active Substance: BELIMUMAB
     Dosage: 740 MG, Q4W

REACTIONS (2)
  - Inappropriate schedule of product administration [Unknown]
  - Product dose omission issue [Unknown]
